FAERS Safety Report 10553544 (Version 1)
Quarter: 2014Q4

REPORT INFORMATION
  Report Type: Spontaneous
  Country: RU (occurrence: None)
  Receive Date: 20141028
  Receipt Date: 20141028
  Transmission Date: 20150529
  Serious: Yes (Other)
  Sender: FDA-Public Use
  Company Number: B1006874A

PATIENT
  Sex: Female

DRUGS (6)
  1. KOMBIGLYZE XR (METFORMIN HYDROCHLORIDE+SAXAGLIPTIN) [Concomitant]
  2. KIVEXA [Suspect]
     Active Substance: ABACAVIR SULFATE\LAMIVUDINE
     Indication: HIV INFECTION
  3. STOCRIN [Suspect]
     Active Substance: EFAVIRENZ
     Indication: HIV INFECTION
  4. METFORMIN [Suspect]
     Active Substance: METFORMIN HYDROCHLORIDE
  5. KALETRA [Suspect]
     Active Substance: LOPINAVIR\RITONAVIR
     Indication: HIV INFECTION
  6. EDURANT (RILPIVIRINE) [Concomitant]

REACTIONS (5)
  - Type 2 diabetes mellitus [None]
  - Asthma [None]
  - Rhinitis allergic [None]
  - Blister [None]
  - Pruritus [None]
